FAERS Safety Report 7805044-5 (Version None)
Quarter: 2011Q4

REPORT INFORMATION
  Report Type: 
  Country: None (occurrence: None)
  Receive Date: 20111010
  Receipt Date: 20110928
  Transmission Date: 20120403
  Serious: Yes (Other)
  Sender: FDA-Public Use
  Company Number: US-GLAXOSMITHKLINE-A0948258A

PATIENT
  Age: 52 Year
  Sex: Female

DRUGS (5)
  1. LAMICTAL [Suspect]
     Indication: BIPOLAR DISORDER
     Route: 048
  2. HYDROCODONE BITARTRATE + ACETAMINOPHEN [Suspect]
     Route: 048
     Dates: start: 20110201, end: 20110601
  3. IMURAN [Suspect]
     Indication: COLON CANCER
     Route: 065
     Dates: start: 20110601, end: 20110701
  4. NORCO [Suspect]
     Indication: PAIN
     Dosage: 1TAB AS REQUIRED
     Route: 048
     Dates: start: 20110601
  5. HYDROCODONE BITARTRATE + ACETAMINOPHEN [Suspect]
     Indication: PAIN
     Route: 048

REACTIONS (7)
  - PSYCHOMOTOR HYPERACTIVITY [None]
  - AGGRESSION [None]
  - DRUG INTERACTION [None]
  - ANXIETY [None]
  - VOMITING [None]
  - DRUG HYPERSENSITIVITY [None]
  - MOOD ALTERED [None]
